FAERS Safety Report 4843882-1 (Version None)
Quarter: 2005Q4

REPORT INFORMATION
  Report Type: 
  Country: None (occurrence: None)
  Receive Date: 20051130
  Receipt Date: 20051130
  Transmission Date: 20060501
  Serious: Yes (Other)
  Sender: FDA-Public Use
  Company Number: None

PATIENT
  Sex: Female
  Weight: 63.5036 kg

DRUGS (2)
  1. SEREVENT [Suspect]
  2. ADVAIR DISKUS 100/50 [Suspect]

REACTIONS (2)
  - MUSCLE SPASMS [None]
  - THROAT IRRITATION [None]
